FAERS Safety Report 8825179 (Version 1)
Quarter: 2012Q4

REPORT INFORMATION
  Report Type: 
  Country: US (occurrence: US)
  Receive Date: 20121004
  Receipt Date: 20121004
  Transmission Date: 20130627
  Serious: Yes (Hospitalization)
  Sender: FDA-Public Use
  Company Number: US-GLAXOSMITHKLINE-A0996162A

PATIENT
  Sex: Female

DRUGS (3)
  1. WELLBUTRIN [Suspect]
     Indication: PRODUCT USED FOR UNKNOWN INDICATION
     Route: 065
     Dates: start: 2007, end: 201206
  2. LUNESTA [Suspect]
     Indication: POSTPARTUM DEPRESSION
     Route: 048
     Dates: start: 2007, end: 201206
  3. LEXAPRO [Concomitant]

REACTIONS (6)
  - Anxiety [Recovered/Resolved]
  - Aggression [Unknown]
  - Confusional state [Unknown]
  - Drug ineffective [Unknown]
  - Insomnia [Unknown]
  - Amnesia [Unknown]
